FAERS Safety Report 4406766-9 (Version None)
Quarter: 2004Q3

REPORT INFORMATION
  Report Type: 
  Country: None (occurrence: None)
  Receive Date: 20040715
  Receipt Date: 20040708
  Transmission Date: 20050211
  Serious: Yes (Death, Hospitalization)
  Sender: FDA-Public Use
  Company Number: STA-AE-04-MTX-298

PATIENT
  Age: 74 Year
  Sex: Female

DRUGS (1)
  1. RHEUMATREX [Suspect]
     Indication: RHEUMATOID ARTHRITIS
     Dosage: 6 MG 1X PER 1 WK, ORAL
     Route: 048
     Dates: end: 20040401

REACTIONS (3)
  - ACUTE RESPIRATORY DISTRESS SYNDROME [None]
  - GASTRIC ULCER HAEMORRHAGE [None]
  - INTERSTITIAL LUNG DISEASE [None]
